FAERS Safety Report 8979148 (Version 3)
Quarter: 2013Q3

REPORT INFORMATION
  Report Type: Spontaneous
  Country: CA (occurrence: CA)
  Receive Date: 20121221
  Receipt Date: 20130731
  Transmission Date: 20140515
  Serious: Yes (Hospitalization)
  Sender: FDA-Public Use
  Company Number: CHPA2012CA025475

PATIENT
  Age: 54 Year
  Sex: Female

DRUGS (1)
  1. KERI SHEA BUTTER [Suspect]
     Indication: DRY SKIN
     Dosage: UNK, UNK
     Route: 061
     Dates: start: 2007, end: 2012

REACTIONS (2)
  - Bacterial infection [Recovered/Resolved]
  - Chapped lips [Recovered/Resolved]
